FAERS Safety Report 18789025 (Version 1)
Quarter: 2021Q1

REPORT INFORMATION
  Report Type: Spontaneous
  Country: US (occurrence: US)
  Receive Date: 20210126
  Receipt Date: 20210126
  Transmission Date: 20210419
  Serious: No
  Sender: FDA-Public Use
  Company Number: US-ULTRAGENYX PHARMACEUTICAL INC.-US-UGNX-20-00260

PATIENT
  Sex: Female

DRUGS (3)
  1. DOJOLVI [Suspect]
     Active Substance: TRIHEPTANOIN
     Route: 048
  2. DOJOLVI [Suspect]
     Active Substance: TRIHEPTANOIN
     Indication: VERY LONG-CHAIN ACYL-COENZYME A DEHYDROGENASE DEFICIENCY
     Route: 048
     Dates: start: 20201027
  3. DOJOLVI [Suspect]
     Active Substance: TRIHEPTANOIN
     Route: 048

REACTIONS (1)
  - Vomiting [Recovering/Resolving]
